FAERS Safety Report 18928025 (Version 1)
Quarter: 2021Q1

REPORT INFORMATION
  Report Type: Report from Study
  Country: CA (occurrence: CA)
  Receive Date: 20210223
  Receipt Date: 20210223
  Transmission Date: 20210420
  Serious: Yes (Other)
  Sender: FDA-Public Use
  Company Number: CA-TAKEDA-CA201844828

PATIENT
  Age: 65 Year
  Sex: Female

DRUGS (1)
  1. GAMMAGARD LIQUID [Suspect]
     Active Substance: HUMAN IMMUNOGLOBULIN G
     Indication: PRODUCT USED FOR UNKNOWN INDICATION
     Dosage: 12 G, 1X/WEEK
     Route: 058
     Dates: start: 20180901

REACTIONS (8)
  - Tooth extraction [Unknown]
  - Expired product administered [Unknown]
  - Product dose omission issue [Unknown]
  - Malaise [Unknown]
  - Liquid product physical issue [Unknown]
  - Somnolence [Unknown]
  - Lung neoplasm malignant [Unknown]
  - Insomnia [Unknown]

NARRATIVE: CASE EVENT DATE: 202011
